FAERS Safety Report 4851833-9 (Version None)
Quarter: 2005Q4

REPORT INFORMATION
  Report Type: 
  Country: None (occurrence: None)
  Receive Date: 20051125
  Receipt Date: 20041104
  Transmission Date: 20060501
  Serious: Yes (Hospitalization, Other)
  Sender: FDA-Public Use
  Company Number: 2004086095

PATIENT
  Age: 71 Year
  Sex: Male
  Weight: 88.905 kg

DRUGS (17)
  1. TIKOSYN [Suspect]
     Indication: ATRIAL FIBRILLATION
     Dosage: 1000 MCG (500 MCG, 2 IN 1
  2. NICOTINIC ACID [Suspect]
     Indication: HIGH DENSITY LIPOPROTEIN
     Dosage: 500 MG (500 MG, 1 IN 1 D), ORAL
     Route: 048
     Dates: start: 20040909, end: 20041001
  3. NICOTINIC ACID [Suspect]
     Indication: LOW DENSITY LIPOPROTEIN
     Dosage: 500 MG (500 MG, 1 IN 1 D), ORAL
     Route: 048
     Dates: start: 20040909, end: 20041001
  4. LISINOPRIL [Concomitant]
  5. ASPIRIN [Concomitant]
  6. WARFARIN SODIUM [Concomitant]
  7. FISH OIL (FISH OIL) [Concomitant]
  8. ZINC (ZINC) [Concomitant]
  9. CYANOCOBALAMIN [Concomitant]
  10. FOLIC ACID [Concomitant]
  11. SELENIUM (SELENIUM) [Concomitant]
  12. ASCORBIC ACID [Concomitant]
  13. MAGNESIUM (MAGNESIUM) [Concomitant]
  14. CALCIUM D3 ^STADA^ (CALCIUM, COLECALCIFEROL) [Concomitant]
  15. SERENOA REPENS (SERENOA REPENS) [Concomitant]
  16. PSYLLIUM (PSYLLIUM) [Concomitant]
  17. PYRIDOXINE HCL [Concomitant]

REACTIONS (12)
  - ASTHENIA [None]
  - ATRIAL FIBRILLATION [None]
  - BLOOD CHOLESTEROL INCREASED [None]
  - CARDIAC ARREST [None]
  - DILATATION ATRIAL [None]
  - DILATATION VENTRICULAR [None]
  - HEART RATE DECREASED [None]
  - HIGH DENSITY LIPOPROTEIN DECREASED [None]
  - LOW DENSITY LIPOPROTEIN INCREASED [None]
  - MENTAL IMPAIRMENT [None]
  - PARAESTHESIA [None]
  - POLYP COLORECTAL [None]
